FAERS Safety Report 17671682 (Version 1)
Quarter: 2020Q2

REPORT INFORMATION
  Report Type: Other
  Country: US (occurrence: US)
  Receive Date: 20200415
  Receipt Date: 20200415
  Transmission Date: 20200713
  Serious: Yes (Other)
  Sender: FDA-Public Use
  Company Number: US-ALKERMES INC.-ALK-2019-002661

PATIENT
  Age: 36 Year
  Sex: Female
  Weight: 91.8 kg

DRUGS (2)
  1. VIVITROL [Suspect]
     Active Substance: NALTREXONE
     Indication: DRUG DEPENDENCE
     Dosage: 380 MG, QMO
     Route: 030
  2. VIVITROL [Suspect]
     Active Substance: NALTREXONE
     Indication: ALCOHOLISM

REACTIONS (3)
  - Amenorrhoea [Unknown]
  - Menstruation irregular [Unknown]
  - Weight increased [Unknown]

NARRATIVE: CASE EVENT DATE: 20181030
